FAERS Safety Report 13185854 (Version 1)
Quarter: 2017Q1

REPORT INFORMATION
  Report Type: Spontaneous
  Country: JP (occurrence: JP)
  Receive Date: 20170203
  Receipt Date: 20170203
  Transmission Date: 20170428
  Serious: Yes (Other)
  Sender: FDA-Public Use
  Company Number: JP-TEVA-735077ISR

PATIENT
  Age: 58 Year
  Sex: Female

DRUGS (5)
  1. BOSENTAN. [Suspect]
     Active Substance: BOSENTAN
     Indication: PORTOPULMONARY HYPERTENSION
     Dosage: 125 MILLIGRAM DAILY;
     Route: 065
  2. FUROSEMIDE. [Suspect]
     Active Substance: FUROSEMIDE
     Indication: PORTOPULMONARY HYPERTENSION
     Dosage: 80 MILLIGRAM DAILY;
     Route: 048
  3. SPIRONOLACTONE. [Suspect]
     Active Substance: SPIRONOLACTONE
     Indication: PORTOPULMONARY HYPERTENSION
     Dosage: 100 MILLIGRAM DAILY;
     Route: 065
  4. AMBRISENTAN [Suspect]
     Active Substance: AMBRISENTAN
     Indication: PORTOPULMONARY HYPERTENSION
     Dosage: 5 MILLIGRAM DAILY;
     Route: 065
  5. SILDENAFIL. [Suspect]
     Active Substance: SILDENAFIL
     Indication: PORTOPULMONARY HYPERTENSION
     Dosage: 60 MILLIGRAM DAILY;
     Route: 065

REACTIONS (3)
  - Hepatotoxicity [Unknown]
  - Hyponatraemia [Recovering/Resolving]
  - Hypokalaemia [Recovered/Resolved]
